FAERS Safety Report 16795088 (Version 2)
Quarter: 2019Q3

REPORT INFORMATION
  Report Type: Spontaneous
  Country: US (occurrence: US)
  Receive Date: 20190911
  Receipt Date: 20190912
  Transmission Date: 20191005
  Serious: No
  Sender: FDA-Public Use
  Company Number: US-PFIZER INC-2019390711

PATIENT
  Age: 53 Year
  Sex: Female
  Weight: 92.99 kg

DRUGS (4)
  1. LYRICA [Suspect]
     Active Substance: PREGABALIN
     Indication: NEUROPATHY PERIPHERAL
     Dosage: 150 MG, 2X/DAY
  2. LYRICA [Suspect]
     Active Substance: PREGABALIN
     Dosage: 2 DF, 2X/DAY
     Route: 048
     Dates: start: 201908
  3. PREGABALIN. [Suspect]
     Active Substance: PREGABALIN
     Dosage: 1 DF, 2X/DAY (1 TABLET IN THE MORNING AND AT NIGHT)
  4. PREGABALIN. [Suspect]
     Active Substance: PREGABALIN
     Dosage: 2 DF, 2X/DAY

REACTIONS (2)
  - Balance disorder [Recovering/Resolving]
  - Therapeutic product effect incomplete [Unknown]

NARRATIVE: CASE EVENT DATE: 2019
